FAERS Safety Report 7171153-X (Version None)
Quarter: 2010Q4

REPORT INFORMATION
  Report Type: 
  Country: None (occurrence: None)
  Receive Date: 20101217
  Receipt Date: 20101215
  Transmission Date: 20110411
  Serious: Yes (Other)
  Sender: FDA-Public Use
  Company Number: BE-PFIZER INC-2010128554

PATIENT
  Sex: Male

DRUGS (1)
  1. DALACIN [Suspect]
     Indication: PHLEBITIS
     Dosage: 300 MG, 2X/DAY
     Route: 048

REACTIONS (1)
  - PHLEBITIS [None]
